FAERS Safety Report 7518567-3 (Version None)
Quarter: 2011Q2

REPORT INFORMATION
  Report Type: 
  Country: None (occurrence: None)
  Receive Date: 20110602
  Receipt Date: 20110523
  Transmission Date: 20111010
  Serious: Yes (Other)
  Sender: FDA-Public Use
  Company Number: US-JNJFOC-20110511037

PATIENT
  Sex: Female
  Weight: 77.11 kg

DRUGS (8)
  1. AREDIA [Concomitant]
     Indication: NEOPLASM MALIGNANT
     Route: 042
  2. FENTANYL-100 [Suspect]
     Indication: CANCER PAIN
     Route: 062
     Dates: start: 20100101, end: 20110401
  3. LEVOTHYROXINE SODIUM [Concomitant]
     Indication: THYROID DISORDER
     Route: 048
  4. CELEXA [Concomitant]
     Indication: DEPRESSION
     Route: 048
  5. FEMARA [Concomitant]
     Indication: NEOPLASM MALIGNANT
     Route: 048
  6. ALPRAZOLAM [Concomitant]
     Indication: ANXIETY
     Route: 048
  7. SOMA [Concomitant]
     Indication: MUSCLE RELAXANT THERAPY
     Dosage: AS NEEDED
     Route: 048
  8. FENTANYL-100 [Suspect]
     Indication: CANCER PAIN
     Route: 062
     Dates: start: 20110401

REACTIONS (6)
  - APPLICATION SITE RASH [None]
  - BRONCHITIS [None]
  - WRONG TECHNIQUE IN DRUG USAGE PROCESS [None]
  - FALL [None]
  - ANKLE FRACTURE [None]
  - APPLICATION SITE PRURITUS [None]
